FAERS Safety Report 9875721 (Version 1)
Quarter: 2014Q1

REPORT INFORMATION
  Report Type: Other
  Country: US (occurrence: US)
  Receive Date: 20140206
  Receipt Date: 20140206
  Transmission Date: 20141002
  Serious: No
  Sender: FDA-Public Use
  Company Number: US-ACORDA-ACO_37261_2013

PATIENT
  Age: 56 Year
  Sex: Male
  Weight: 70.3 kg

DRUGS (6)
  1. AMPYRA [Suspect]
     Indication: GAIT DISTURBANCE
     Dosage: 10 MG, BID
     Route: 048
     Dates: start: 201306, end: 201306
  2. AMPYRA [Suspect]
     Dosage: 10 MG, BID
     Route: 048
     Dates: start: 20130707
  3. DIMETHYL FUMARATE [Concomitant]
     Indication: PRODUCT USED FOR UNKNOWN INDICATION
     Dosage: UNK
     Route: 065
     Dates: start: 201306
  4. ANTIHYPERTENSIVES [Concomitant]
     Indication: HYPERTENSION
     Dosage: UNK
     Route: 065
  5. OTHER THERAPEUTIC PRODUCTS [Concomitant]
     Indication: HYPERCHOLESTEROLAEMIA
     Dosage: UNK
     Route: 065
  6. AVONEX [Concomitant]
     Indication: PRODUCT USED FOR UNKNOWN INDICATION
     Dosage: UNK

REACTIONS (1)
  - Drug ineffective [Unknown]
